FAERS Safety Report 20890239 (Version 1)
Quarter: 2022Q2

REPORT INFORMATION
  Report Type: Spontaneous
  Country: CA (occurrence: CA)
  Receive Date: 20220530
  Receipt Date: 20220530
  Transmission Date: 20220721
  Serious: Yes (Other)
  Sender: FDA-Public Use
  Company Number: CA-BRISTOL-MYERS SQUIBB COMPANY-2022-046450

PATIENT
  Age: 59 Year
  Sex: Female

DRUGS (175)
  1. ORENCIA [Suspect]
     Active Substance: ABATACEPT
     Indication: Product used for unknown indication
     Route: 065
  2. ORENCIA [Suspect]
     Active Substance: ABATACEPT
     Dosage: THERAPY DURATION 183.0 DAYS
     Route: 065
  3. ORENCIA [Suspect]
     Active Substance: ABATACEPT
     Route: 065
  4. ACTEMRA [Concomitant]
     Active Substance: TOCILIZUMAB
     Indication: Product used for unknown indication
     Route: 065
  5. ACTEMRA [Concomitant]
     Active Substance: TOCILIZUMAB
     Route: 065
  6. ACTEMRA [Concomitant]
     Active Substance: TOCILIZUMAB
     Route: 065
  7. ADALIMUMAB [Concomitant]
     Active Substance: ADALIMUMAB
     Indication: Rheumatoid arthritis
     Route: 058
  8. ADALIMUMAB [Concomitant]
     Active Substance: ADALIMUMAB
     Route: 065
  9. ADALIMUMAB [Concomitant]
     Active Substance: ADALIMUMAB
     Route: 058
  10. AMITRIPTYLINE [Concomitant]
     Active Substance: AMITRIPTYLINE
     Indication: Product used for unknown indication
     Route: 048
  11. AMLODIPINE BESYLATE [Concomitant]
     Active Substance: AMLODIPINE BESYLATE
     Indication: Product used for unknown indication
     Route: 065
  12. LEFLUNOMIDE [Concomitant]
     Active Substance: LEFLUNOMIDE
     Indication: Product used for unknown indication
     Route: 065
  13. PREDNISONE [Concomitant]
     Active Substance: PREDNISONE
     Indication: Condition aggravated
     Route: 065
  14. APREMILAST [Concomitant]
     Active Substance: APREMILAST
     Indication: Product used for unknown indication
     Route: 065
  15. ARAVA [Concomitant]
     Active Substance: LEFLUNOMIDE
     Indication: Product used for unknown indication
     Route: 065
  16. ARAVA [Concomitant]
     Active Substance: LEFLUNOMIDE
     Route: 065
  17. ARAVA [Concomitant]
     Active Substance: LEFLUNOMIDE
     Route: 048
  18. ASACOL [Concomitant]
     Active Substance: MESALAMINE
     Indication: Crohn^s disease
     Route: 065
  19. AZATHIOPRINE [Concomitant]
     Active Substance: AZATHIOPRINE
     Indication: Product used for unknown indication
     Route: 065
  20. AZATHIOPRINE [Concomitant]
     Active Substance: AZATHIOPRINE
     Dosage: THERAPY DURATION 61 DAYS
     Route: 065
  21. AZATHIOPRINE [Concomitant]
     Active Substance: AZATHIOPRINE
     Route: 065
  22. AZATHIOPRINE [Concomitant]
     Active Substance: AZATHIOPRINE
     Route: 065
  23. AZATHIOPRINE [Concomitant]
     Active Substance: AZATHIOPRINE
     Route: 065
  24. BETAMETHASONE [Concomitant]
     Active Substance: BETAMETHASONE
     Indication: Product used for unknown indication
     Route: 061
  25. BUPROPION [Concomitant]
     Active Substance: BUPROPION
     Indication: Product used for unknown indication
     Route: 065
  26. BUPROPION HYDROCHLORIDE [Concomitant]
     Active Substance: BUPROPION HYDROCHLORIDE
     Indication: Product used for unknown indication
     Route: 065
  27. BUPROPION HYDROCHLORIDE [Concomitant]
     Active Substance: BUPROPION HYDROCHLORIDE
     Route: 065
  28. CERTOLIZUMAB PEGOL [Concomitant]
     Active Substance: CERTOLIZUMAB PEGOL
     Indication: Rheumatoid arthritis
     Route: 058
  29. CERTOLIZUMAB PEGOL [Concomitant]
     Active Substance: CERTOLIZUMAB PEGOL
     Dosage: THERAPY DURATION 61 DAYS
     Route: 058
  30. CERTOLIZUMAB PEGOL [Concomitant]
     Active Substance: CERTOLIZUMAB PEGOL
     Route: 065
  31. CERTOLIZUMAB PEGOL [Concomitant]
     Active Substance: CERTOLIZUMAB PEGOL
     Route: 058
  32. CERTOLIZUMAB PEGOL [Concomitant]
     Active Substance: CERTOLIZUMAB PEGOL
     Route: 065
  33. CETIRIZINE [Concomitant]
     Active Substance: CETIRIZINE HYDROCHLORIDE
     Indication: Rheumatoid arthritis
     Route: 065
  34. CYCLOSPORINE [Concomitant]
     Active Substance: CYCLOSPORINE
     Indication: Psoriasis
     Route: 065
  35. CIMZIA [Concomitant]
     Active Substance: CERTOLIZUMAB PEGOL
     Indication: Rheumatoid arthritis
     Route: 058
  36. CIMZIA [Concomitant]
     Active Substance: CERTOLIZUMAB PEGOL
     Indication: Product used for unknown indication
     Route: 058
  37. CIMZIA [Concomitant]
     Active Substance: CERTOLIZUMAB PEGOL
     Route: 058
  38. CIMZIA [Concomitant]
     Active Substance: CERTOLIZUMAB PEGOL
     Route: 058
  39. CIMZIA [Concomitant]
     Active Substance: CERTOLIZUMAB PEGOL
     Route: 058
  40. CIMZIA [Concomitant]
     Active Substance: CERTOLIZUMAB PEGOL
     Route: 065
  41. CORTISONE ACETATE [Concomitant]
     Active Substance: CORTISONE ACETATE
     Indication: Rheumatoid arthritis
     Route: 065
  42. COSENTYX [Concomitant]
     Active Substance: SECUKINUMAB
     Indication: Product used for unknown indication
     Route: 065
  43. COSENTYX [Concomitant]
     Active Substance: SECUKINUMAB
     Route: 065
  44. DESOXIMETASONE [Concomitant]
     Active Substance: DESOXIMETASONE
     Indication: Product used for unknown indication
     Route: 048
  45. DESOXIMETASONE [Concomitant]
     Active Substance: DESOXIMETASONE
     Route: 061
  46. DILAUDID [Concomitant]
     Active Substance: HYDROMORPHONE HYDROCHLORIDE
     Indication: Pain
     Route: 065
  47. DILAUDID [Concomitant]
     Active Substance: HYDROMORPHONE HYDROCHLORIDE
     Route: 065
  48. DILAUDID [Concomitant]
     Active Substance: HYDROMORPHONE HYDROCHLORIDE
     Route: 065
  49. DILAUDID [Concomitant]
     Active Substance: HYDROMORPHONE HYDROCHLORIDE
     Route: 065
  50. DILAUDID [Concomitant]
     Active Substance: HYDROMORPHONE HYDROCHLORIDE
     Route: 065
  51. DILAUDID [Concomitant]
     Active Substance: HYDROMORPHONE HYDROCHLORIDE
     Route: 065
  52. DOXYCYCLINE [Concomitant]
     Active Substance: DOXYCYCLINE
     Indication: Product used for unknown indication
     Route: 065
  53. DOXYCYCLINE [Concomitant]
     Active Substance: DOXYCYCLINE
     Route: 065
  54. ENBREL [Concomitant]
     Active Substance: ETANERCEPT
     Indication: Product used for unknown indication
     Route: 065
  55. ENBREL [Concomitant]
     Active Substance: ETANERCEPT
     Indication: Rheumatoid arthritis
     Route: 065
  56. ENBREL [Concomitant]
     Active Substance: ETANERCEPT
     Route: 065
  57. ERELZI [Concomitant]
     Active Substance: ETANERCEPT-SZZS
     Indication: Rheumatoid arthritis
     Route: 065
  58. ERELZI [Concomitant]
     Active Substance: ETANERCEPT-SZZS
     Route: 065
  59. ERELZI [Concomitant]
     Active Substance: ETANERCEPT-SZZS
     Route: 065
  60. ERELZI [Concomitant]
     Active Substance: ETANERCEPT-SZZS
     Route: 065
  61. ERELZI [Concomitant]
     Active Substance: ETANERCEPT-SZZS
     Route: 065
  62. ERELZI [Concomitant]
     Active Substance: ETANERCEPT-SZZS
     Route: 065
  63. ERELZI [Concomitant]
     Active Substance: ETANERCEPT-SZZS
     Route: 065
  64. FOLIC ACID [Concomitant]
     Active Substance: FOLIC ACID
     Indication: Rheumatoid arthritis
     Route: 048
  65. FOLIC ACID [Concomitant]
     Active Substance: FOLIC ACID
     Route: 065
  66. GOLIMUMAB [Concomitant]
     Active Substance: GOLIMUMAB
     Indication: Product used for unknown indication
     Route: 058
  67. GOLIMUMAB [Concomitant]
     Active Substance: GOLIMUMAB
     Route: 058
  68. HUMIRA [Concomitant]
     Active Substance: ADALIMUMAB
     Indication: Product used for unknown indication
     Route: 058
  69. HUMIRA [Concomitant]
     Active Substance: ADALIMUMAB
     Indication: Rheumatoid arthritis
     Route: 058
  70. HUMIRA [Concomitant]
     Active Substance: ADALIMUMAB
     Route: 058
  71. HUMIRA [Concomitant]
     Active Substance: ADALIMUMAB
     Route: 065
  72. HYDROMORPHONE HYDROCHLORIDE [Concomitant]
     Active Substance: HYDROMORPHONE HYDROCHLORIDE
     Indication: Product used for unknown indication
     Route: 065
  73. HYDROMORPHONE HYDROCHLORIDE [Concomitant]
     Active Substance: HYDROMORPHONE HYDROCHLORIDE
     Route: 065
  74. HYDROMORPHONE HYDROCHLORIDE [Concomitant]
     Active Substance: HYDROMORPHONE HYDROCHLORIDE
     Route: 030
  75. HYDROXYCHLOROQUINE SULFATE [Concomitant]
     Active Substance: HYDROXYCHLOROQUINE SULFATE
     Indication: Product used for unknown indication
     Route: 065
  76. HYDROXYCHLOROQUINE SULFATE [Concomitant]
     Active Substance: HYDROXYCHLOROQUINE SULFATE
     Indication: Rheumatoid arthritis
     Route: 065
  77. HYDROXYCHLOROQUINE SULFATE [Concomitant]
     Active Substance: HYDROXYCHLOROQUINE SULFATE
     Route: 065
  78. HYDROXYCHLOROQUINE SULFATE [Concomitant]
     Active Substance: HYDROXYCHLOROQUINE SULFATE
     Route: 065
  79. HYDROXYCHLOROQUINE SULFATE [Concomitant]
     Active Substance: HYDROXYCHLOROQUINE SULFATE
     Route: 065
  80. INFLIXIMAB [Concomitant]
     Active Substance: INFLIXIMAB
     Indication: Product used for unknown indication
     Route: 041
  81. INFLIXIMAB [Concomitant]
     Active Substance: INFLIXIMAB
     Indication: Rheumatoid arthritis
     Route: 041
  82. INFLIXIMAB [Concomitant]
     Active Substance: INFLIXIMAB
     Indication: Crohn^s disease
     Route: 065
  83. INFLIXIMAB [Concomitant]
     Active Substance: INFLIXIMAB
     Route: 041
  84. INFLIXIMAB [Concomitant]
     Active Substance: INFLIXIMAB
     Route: 065
  85. INFLIXIMAB [Concomitant]
     Active Substance: INFLIXIMAB
     Route: 042
  86. LEFLUNOMIDE [Concomitant]
     Active Substance: LEFLUNOMIDE
     Indication: Product used for unknown indication
     Route: 048
  87. LEFLUNOMIDE [Concomitant]
     Active Substance: LEFLUNOMIDE
     Indication: Rheumatoid arthritis
     Route: 048
  88. LEFLUNOMIDE [Concomitant]
     Active Substance: LEFLUNOMIDE
     Route: 048
  89. METHOTREXATE [Concomitant]
     Active Substance: METHOTREXATE
     Indication: Product used for unknown indication
     Route: 048
  90. METHOTREXATE [Concomitant]
     Active Substance: METHOTREXATE
     Indication: Rheumatoid arthritis
     Route: 058
  91. METHOTREXATE [Concomitant]
     Active Substance: METHOTREXATE
     Route: 058
  92. METHOTREXATE [Concomitant]
     Active Substance: METHOTREXATE
     Route: 048
  93. METHOTREXATE [Concomitant]
     Active Substance: METHOTREXATE
     Route: 048
  94. METHOTREXATE [Concomitant]
     Active Substance: METHOTREXATE
     Route: 048
  95. METHOTREXATE [Concomitant]
     Active Substance: METHOTREXATE
     Route: 048
  96. METHOTREXATE [Concomitant]
     Active Substance: METHOTREXATE
     Route: 048
  97. METHOTREXATE [Concomitant]
     Active Substance: METHOTREXATE
     Route: 065
  98. METHOTREXATE [Concomitant]
     Active Substance: METHOTREXATE
     Route: 048
  99. METHOTREXATE [Concomitant]
     Active Substance: METHOTREXATE
     Route: 058
  100. MINOCYCLINE [Concomitant]
     Active Substance: MINOCYCLINE HYDROCHLORIDE
     Indication: Product used for unknown indication
     Route: 065
  101. MINOCYCLINE [Concomitant]
     Active Substance: MINOCYCLINE HYDROCHLORIDE
     Route: 065
  102. MINOCYCLINE [Concomitant]
     Active Substance: MINOCYCLINE HYDROCHLORIDE
     Route: 065
  103. MINOCYCLINE HYDROCHLORIDE [Concomitant]
     Active Substance: MINOCYCLINE HYDROCHLORIDE
     Indication: Product used for unknown indication
     Route: 065
  104. MORPHINE SULFATE [Concomitant]
     Active Substance: MORPHINE SULFATE
     Indication: Product used for unknown indication
     Route: 065
  105. MORPHINE SULFATE [Concomitant]
     Active Substance: MORPHINE SULFATE
     Route: 065
  106. MYOCHRYSINE [Concomitant]
     Active Substance: GOLD SODIUM THIOMALATE
     Indication: Product used for unknown indication
     Route: 030
  107. OTEZLA [Concomitant]
     Active Substance: APREMILAST
     Indication: Product used for unknown indication
     Route: 065
  108. OTEZLA [Concomitant]
     Active Substance: APREMILAST
     Route: 048
  109. OTEZLA [Concomitant]
     Active Substance: APREMILAST
     Route: 048
  110. OTEZLA [Concomitant]
     Active Substance: APREMILAST
     Route: 048
  111. OTEZLA [Concomitant]
     Active Substance: APREMILAST
     Route: 048
  112. OTEZLA [Concomitant]
     Active Substance: APREMILAST
     Route: 048
  113. OTEZLA [Concomitant]
     Active Substance: APREMILAST
     Route: 065
  114. OTEZLA [Concomitant]
     Active Substance: APREMILAST
     Route: 065
  115. PHTHALYLSULFATHIAZOLE [Concomitant]
     Active Substance: PHTHALYLSULFATHIAZOLE
     Indication: Product used for unknown indication
     Route: 065
  116. PREDNISONE [Concomitant]
     Active Substance: PREDNISONE
     Indication: Arthralgia
     Route: 065
  117. PREDNISONE ACETATE [Concomitant]
     Active Substance: PREDNISONE ACETATE
     Indication: Product used for unknown indication
     Route: 065
  118. PSEUDOEPHEDRINE HYDROCHLORIDE [Concomitant]
     Active Substance: PSEUDOEPHEDRINE HYDROCHLORIDE
     Indication: Rheumatoid arthritis
     Route: 065
  119. REMICADE [Concomitant]
     Active Substance: INFLIXIMAB
     Indication: Rheumatoid arthritis
     Route: 042
  120. REMICADE [Concomitant]
     Active Substance: INFLIXIMAB
     Indication: Ankylosing spondylitis
     Route: 042
  121. REMICADE [Concomitant]
     Active Substance: INFLIXIMAB
     Route: 042
  122. REMICADE [Concomitant]
     Active Substance: INFLIXIMAB
     Route: 042
  123. REMICADE [Concomitant]
     Active Substance: INFLIXIMAB
     Route: 042
  124. RITUXIMAB [Concomitant]
     Active Substance: RITUXIMAB
     Indication: Product used for unknown indication
     Route: 041
  125. RITUXIMAB [Concomitant]
     Active Substance: RITUXIMAB
     Route: 042
  126. RITUXIMAB [Concomitant]
     Active Substance: RITUXIMAB
     Route: 042
  127. RITUXIMAB [Concomitant]
     Active Substance: RITUXIMAB
     Route: 042
  128. RITUXIMAB [Concomitant]
     Active Substance: RITUXIMAB
     Route: 042
  129. RITUXIMAB [Concomitant]
     Active Substance: RITUXIMAB
     Route: 065
  130. RITUXIMAB [Concomitant]
     Active Substance: RITUXIMAB
     Route: 042
  131. RITUXIMAB [Concomitant]
     Active Substance: RITUXIMAB
     Route: 042
  132. RITUXIMAB [Concomitant]
     Active Substance: RITUXIMAB
     Route: 042
  133. RITUXIMAB [Concomitant]
     Active Substance: RITUXIMAB
     Route: 041
  134. RITUXIMAB [Concomitant]
     Active Substance: RITUXIMAB
     Route: 042
  135. RITUXIMAB [Concomitant]
     Active Substance: RITUXIMAB
     Route: 041
  136. RITUXIMAB [Concomitant]
     Active Substance: RITUXIMAB
     Route: 042
  137. SULFASALAZINE [Concomitant]
     Active Substance: SULFASALAZINE
     Indication: Product used for unknown indication
     Route: 065
  138. SECUKINUMAB [Concomitant]
     Active Substance: SECUKINUMAB
     Indication: Product used for unknown indication
     Route: 065
  139. SIMPONI [Concomitant]
     Active Substance: GOLIMUMAB
     Indication: Product used for unknown indication
     Route: 042
  140. SIMPONI [Concomitant]
     Active Substance: GOLIMUMAB
     Indication: Rheumatoid arthritis
     Route: 065
  141. SIMPONI [Concomitant]
     Active Substance: GOLIMUMAB
     Route: 058
  142. SIMPONI [Concomitant]
     Active Substance: GOLIMUMAB
     Route: 058
  143. SIMPONI [Concomitant]
     Active Substance: GOLIMUMAB
     Route: 042
  144. SIMPONI [Concomitant]
     Active Substance: GOLIMUMAB
     Route: 058
  145. SIRUKUMAB [Concomitant]
     Active Substance: SIRUKUMAB
     Indication: Product used for unknown indication
     Route: 065
  146. SIRUKUMAB [Concomitant]
     Active Substance: SIRUKUMAB
     Route: 065
  147. SIRUKUMAB [Concomitant]
     Active Substance: SIRUKUMAB
     Route: 058
  148. STELARA [Concomitant]
     Active Substance: USTEKINUMAB
     Indication: Product used for unknown indication
     Route: 058
  149. STELARA [Concomitant]
     Active Substance: USTEKINUMAB
     Route: 058
  150. SULFASALAZINE [Concomitant]
     Active Substance: SULFASALAZINE
     Indication: Product used for unknown indication
     Route: 065
  151. SULFASALAZINE [Concomitant]
     Active Substance: SULFASALAZINE
     Indication: Rheumatoid arthritis
     Route: 065
  152. SULFASALAZINE [Concomitant]
     Active Substance: SULFASALAZINE
     Route: 065
  153. TELMISARTAN [Concomitant]
     Active Substance: TELMISARTAN
     Indication: Product used for unknown indication
     Route: 065
  154. TOCILIZUMAB [Concomitant]
     Active Substance: TOCILIZUMAB
     Indication: Rheumatoid arthritis
     Route: 065
  155. TOCILIZUMAB [Concomitant]
     Active Substance: TOCILIZUMAB
     Route: 042
  156. USTEKINUMAB [Concomitant]
     Active Substance: USTEKINUMAB
     Indication: Product used for unknown indication
     Route: 058
  157. USTEKINUMAB [Concomitant]
     Active Substance: USTEKINUMAB
     Route: 058
  158. USTEKINUMAB [Concomitant]
     Active Substance: USTEKINUMAB
     Route: 058
  159. USTEKINUMAB [Concomitant]
     Active Substance: USTEKINUMAB
     Route: 058
  160. WELLBUTRIN [Concomitant]
     Active Substance: BUPROPION HYDROCHLORIDE
     Indication: Product used for unknown indication
     Route: 065
  161. WELLBUTRIN [Concomitant]
     Active Substance: BUPROPION HYDROCHLORIDE
     Route: 065
  162. WELLBUTRIN [Concomitant]
     Active Substance: BUPROPION HYDROCHLORIDE
     Route: 065
  163. WELLBUTRIN [Concomitant]
     Active Substance: BUPROPION HYDROCHLORIDE
     Route: 065
  164. WELLBUTRIN [Concomitant]
     Active Substance: BUPROPION HYDROCHLORIDE
     Route: 065
  165. WELLBUTRIN [Concomitant]
     Active Substance: BUPROPION HYDROCHLORIDE
     Route: 065
  166. WELLBUTRIN [Concomitant]
     Active Substance: BUPROPION HYDROCHLORIDE
     Route: 065
  167. XELJANZ [Concomitant]
     Active Substance: TOFACITINIB CITRATE
     Indication: Product used for unknown indication
     Route: 065
  168. XELJANZ [Concomitant]
     Active Substance: TOFACITINIB CITRATE
     Indication: Rheumatoid arthritis
     Route: 048
  169. XELJANZ [Concomitant]
     Active Substance: TOFACITINIB CITRATE
     Route: 048
  170. XELJANZ [Concomitant]
     Active Substance: TOFACITINIB CITRATE
     Route: 048
  171. XELJANZ [Concomitant]
     Active Substance: TOFACITINIB CITRATE
     Route: 065
  172. XELJANZ [Concomitant]
     Active Substance: TOFACITINIB CITRATE
     Route: 048
  173. XELJANZ [Concomitant]
     Active Substance: TOFACITINIB CITRATE
     Dosage: 1 EVERY 12 HOURS
     Route: 048
  174. XELJANZ [Concomitant]
     Active Substance: TOFACITINIB CITRATE
     Route: 048
  175. ZOPICLONE [Concomitant]
     Active Substance: ZOPICLONE
     Indication: Product used for unknown indication
     Route: 065

REACTIONS (28)
  - Adverse drug reaction [Unknown]
  - Arthritis [Unknown]
  - Blood cholesterol increased [Unknown]
  - Bone erosion [Unknown]
  - Bronchitis [Unknown]
  - Dizziness [Unknown]
  - Drug hypersensitivity [Unknown]
  - Drug ineffective [Unknown]
  - Drug intolerance [Unknown]
  - Drug-induced liver injury [Not Recovered/Not Resolved]
  - Exostosis [Unknown]
  - Foot deformity [Unknown]
  - Headache [Unknown]
  - Hepatic cirrhosis [Not Recovered/Not Resolved]
  - Hypertension [Unknown]
  - Infection [Unknown]
  - Joint dislocation [Unknown]
  - Joint stiffness [Unknown]
  - Malaise [Unknown]
  - Nasopharyngitis [Unknown]
  - Nausea [Unknown]
  - Osteoarthritis [Unknown]
  - Osteoporosis [Unknown]
  - Pneumonia [Not Recovered/Not Resolved]
  - Psoriasis [Unknown]
  - Synovitis [Unknown]
  - Tachycardia [Unknown]
  - Upper respiratory tract infection [Unknown]
